FAERS Safety Report 11110201 (Version 1)
Quarter: 2015Q2

REPORT INFORMATION
  Report Type: Spontaneous
  Country: US (occurrence: None)
  Receive Date: 20150512
  Receipt Date: 20150512
  Transmission Date: 20150821
  Serious: Yes (Disabling)
  Sender: FDA-Public Use
  Company Number: None

PATIENT
  Age: 58 Year
  Sex: Male
  Weight: 79.38 kg

DRUGS (6)
  1. FLONASE [Suspect]
     Active Substance: FLUTICASONE PROPIONATE
     Indication: SEASONAL ALLERGY
     Dosage: 2 SPRAYS/NOSTRAL ONCE DAILY NASAL SPRAY
     Route: 045
     Dates: start: 20150421, end: 20150428
  2. METAMUCIL [Concomitant]
     Active Substance: PLANTAGO SEED
  3. FISH OIL [Concomitant]
     Active Substance: FISH OIL
  4. FLONASE [Suspect]
     Active Substance: FLUTICASONE PROPIONATE
     Indication: NASAL CONGESTION
     Dosage: 2 SPRAYS/NOSTRAL ONCE DAILY NASAL SPRAY
     Route: 045
     Dates: start: 20150421, end: 20150428
  5. LIPITOR [Concomitant]
     Active Substance: ATORVASTATIN CALCIUM
  6. STATIN [Concomitant]
     Active Substance: UNSPECIFIED INGREDIENT

REACTIONS (2)
  - Epistaxis [None]
  - Dizziness [None]

NARRATIVE: CASE EVENT DATE: 20150501
